FAERS Safety Report 10022599 (Version 1)
Quarter: 2014Q1

REPORT INFORMATION
  Report Type: Spontaneous
  Country: US (occurrence: US)
  Receive Date: 20140319
  Receipt Date: 20140319
  Transmission Date: 20141002
  Serious: No
  Sender: FDA-Public Use
  Company Number: US-TEVA-469852USA

PATIENT
  Age: 16 Year
  Sex: Female
  Weight: 90.8 kg

DRUGS (1)
  1. PLAN B [Suspect]
     Indication: POST COITAL CONTRACEPTION
     Route: 048
     Dates: start: 20140216, end: 20140217

REACTIONS (4)
  - Diarrhoea [Recovered/Resolved]
  - Expired drug administered [Unknown]
  - Nausea [Recovered/Resolved]
  - Menstruation irregular [Not Recovered/Not Resolved]
